FAERS Safety Report 4960734-7 (Version None)
Quarter: 2006Q2

REPORT INFORMATION
  Report Type: 
  Country: None (occurrence: None)
  Receive Date: 20060403
  Receipt Date: 19931018
  Transmission Date: 20061013
  Serious: Yes (Death, Life-Threatening)
  Sender: FDA-Public Use
  Company Number: 1993AP16156

PATIENT
  Age: 2 Year
  Sex: Female
  Weight: 13 kg

DRUGS (4)
  1. PROPOFOL [Suspect]
     Dosage: 10      MG/ML 4DYS
     Route: 042
  2. AMOXICILLIN [Concomitant]
     Indication: BRONCHITIS CHRONIC
  3. CEFOTAXIME [Concomitant]
     Indication: SEPSIS
  4. FLUCLOXACILLIN [Concomitant]
     Indication: BRONCHITIS CHRONIC

REACTIONS (5)
  - CARDIAC ARREST [None]
  - CARDIAC FAILURE [None]
  - LIPIDS ABNORMAL [None]
  - METABOLIC ACIDOSIS [None]
  - SINUS BRADYCARDIA [None]
